FAERS Safety Report 5122278-1 (Version None)
Quarter: 2006Q4

REPORT INFORMATION
  Report Type: 
  Country: None (occurrence: None)
  Receive Date: 20061003
  Receipt Date: 20060919
  Transmission Date: 20070319
  Serious: Yes (Hospitalization)
  Sender: FDA-Public Use
  Company Number: 2006PV020486

PATIENT
  Age: 71 Year
  Sex: Male
  Weight: 110.2241 kg

DRUGS (4)
  1. SYMLIN [Suspect]
     Indication: DIABETES MELLITUS NON-INSULIN-DEPENDENT
     Dosage: SC
     Route: 058
     Dates: start: 20060208, end: 20060701
  2. LEVEMIR [Concomitant]
  3. NOVOLOG [Concomitant]
  4. AMARYL [Concomitant]

REACTIONS (3)
  - CELLULITIS [None]
  - CORONARY ARTERY DISEASE [None]
  - DISEASE PROGRESSION [None]
